FAERS Safety Report 6270291-3 (Version None)
Quarter: 2009Q3

REPORT INFORMATION
  Report Type: 
  Country: None (occurrence: None)
  Receive Date: 20090716
  Receipt Date: 20090713
  Transmission Date: 20100115
  Serious: Yes (Death)
  Sender: FDA-Public Use
  Company Number: US-ASTRAZENECA-2009UW14046

PATIENT
  Age: 3 Year
  Sex: Female

DRUGS (2)
  1. SEROQUEL [Suspect]
     Route: 048
     Dates: end: 20060403
  2. GEODON [Suspect]

REACTIONS (2)
  - CARDIAC ARREST [None]
  - COLONIC OBSTRUCTION [None]
